FAERS Safety Report 4718711-7 (Version None)
Quarter: 2005Q3

REPORT INFORMATION
  Report Type: 
  Country: None (occurrence: None)
  Receive Date: 20050719
  Receipt Date: 20050705
  Transmission Date: 20060218
  Serious: Yes (Hospitalization)
  Sender: FDA-Public Use
  Company Number: USA0507101997

PATIENT
  Age: 11 Year
  Sex: Female

DRUGS (4)
  1. HUMATROPE [Suspect]
     Indication: GROWTH HORMONE DEFICIENCY
     Dates: start: 20030501
  2. PROZAC [Concomitant]
  3. SYNTHROID [Concomitant]
  4. LUPRON [Concomitant]

REACTIONS (5)
  - ABASIA [None]
  - BACK PAIN [None]
  - DEVICE FAILURE [None]
  - INTERVERTEBRAL DISC DISORDER [None]
  - PHARMACEUTICAL PRODUCT COMPLAINT [None]
